FAERS Safety Report 20443711 (Version 1)
Quarter: 2022Q1

REPORT INFORMATION
  Report Type: Spontaneous
  Country: JP (occurrence: JP)
  Receive Date: 20220208
  Receipt Date: 20220208
  Transmission Date: 20220423
  Serious: Yes (Hospitalization)
  Sender: FDA-Public Use
  Company Number: JP-PFIZER INC-202200186055

PATIENT
  Age: 24 Year
  Sex: Female
  Weight: 58 kg

DRUGS (3)
  1. HYDROCORTISONE [Suspect]
     Active Substance: HYDROCORTISONE
     Dosage: 300 MG, DAILY
  2. METHIMAZOLE [Concomitant]
     Active Substance: METHIMAZOLE
     Dosage: 45 MG, DAILY
  3. LANDIOLOL HYDROCHLORIDE [Concomitant]
     Active Substance: LANDIOLOL HYDROCHLORIDE
     Dosage: 3 GAMMA (UG/KG/MIN)

REACTIONS (2)
  - Hypokalaemia [Unknown]
  - Cardiac failure [Unknown]
